FAERS Safety Report 9168356 (Version 1)
Quarter: 2013Q1

REPORT INFORMATION
  Report Type: Spontaneous
  Country: US (occurrence: None)
  Receive Date: 20130313
  Receipt Date: 20130313
  Transmission Date: 20140127
  Serious: Yes (Hospitalization)
  Sender: FDA-Public Use
  Company Number: None

PATIENT
  Age: 78 Year
  Sex: Male

DRUGS (2)
  1. TEMODAR [Suspect]
     Indication: NEOPLASM MALIGNANT
     Route: 048
     Dates: start: 201212, end: 20130302
  2. TEMODAR [Suspect]
     Route: 048
     Dates: start: 201212, end: 20130302

REACTIONS (1)
  - Convulsion [None]
